FAERS Safety Report 5886987-9 (Version None)
Quarter: 2008Q3

REPORT INFORMATION
  Report Type: 
  Country: None (occurrence: None)
  Receive Date: 20080917
  Receipt Date: 20080911
  Transmission Date: 20090109
  Serious: Yes (Hospitalization)
  Sender: FDA-Public Use
  Company Number: TR-ROXANE LABORATORIES, INC.-2008-RO-00022RO

PATIENT
  Age: 13 Year
  Sex: Male

DRUGS (8)
  1. METHOTREXATE [Suspect]
     Indication: ACUTE LYMPHOCYTIC LEUKAEMIA
  2. CEFTRIAXONE [Concomitant]
     Indication: GASTROENTERITIS
     Route: 042
  3. TEICOPLANIN [Concomitant]
     Indication: FEBRILE NEUTROPENIA
  4. MOISTURIZERS [Concomitant]
     Indication: ERYTHEMA
     Route: 061
  5. TPN [Concomitant]
     Indication: DYSPHAGIA
     Route: 051
  6. AMPHOTERICIN B [Concomitant]
     Indication: PYREXIA
  7. VENOGLOBULIN [Concomitant]
     Indication: ERYTHEMA
     Route: 042
  8. CIPROFLOXACIN [Concomitant]
     Indication: FEBRILE NEUTROPENIA

REACTIONS (10)
  - ASTHENIA [None]
  - CHEST PAIN [None]
  - DIARRHOEA HAEMORRHAGIC [None]
  - DYSPHAGIA [None]
  - ERYTHEMA [None]
  - FEBRILE NEUTROPENIA [None]
  - GASTROENTERITIS [None]
  - NAUSEA [None]
  - PYREXIA [None]
  - VOMITING [None]
